FAERS Safety Report 17868362 (Version 1)
Quarter: 2020Q2

REPORT INFORMATION
  Report Type: Spontaneous
  Country: CA (occurrence: CA)
  Receive Date: 20200606
  Receipt Date: 20200606
  Transmission Date: 20200714
  Serious: Yes (Hospitalization)
  Sender: FDA-Public Use
  Company Number: CA-ROCHE-2612747

PATIENT
  Age: 35 Year
  Sex: Male

DRUGS (26)
  1. OXAZEPAM. [Interacting]
     Active Substance: OXAZEPAM
     Indication: BIPOLAR I DISORDER
  2. BENZTROPINE MESYLATE. [Concomitant]
     Active Substance: BENZTROPINE MESYLATE
     Indication: BIPOLAR I DISORDER
  3. SERTRALINE [Concomitant]
     Active Substance: SERTRALINE HYDROCHLORIDE
     Indication: DEPRESSED MOOD
     Route: 065
  4. CLONAZEPAM. [Suspect]
     Active Substance: CLONAZEPAM
     Indication: POOR QUALITY SLEEP
     Route: 065
  5. ABILIFY [Interacting]
     Active Substance: ARIPIPRAZOLE
     Indication: BIPOLAR I DISORDER
     Route: 065
  6. LITHIUM. [Interacting]
     Active Substance: LITHIUM
     Indication: BIPOLAR I DISORDER
     Route: 048
  7. ABILIFY [Interacting]
     Active Substance: ARIPIPRAZOLE
     Indication: PSYCHOTIC DISORDER
     Route: 048
  8. ABILIFY MAINTENA [Interacting]
     Active Substance: ARIPIPRAZOLE
     Indication: BIPOLAR I DISORDER
     Route: 065
  9. LEVOMEPROMAZINE [Interacting]
     Active Substance: LEVOMEPROMAZINE
     Indication: POOR QUALITY SLEEP
     Route: 065
  10. LITHIUM. [Interacting]
     Active Substance: LITHIUM
     Indication: AFFECTIVE DISORDER
  11. NOZINAN [LEVOMEPROMAZINE] [Interacting]
     Active Substance: LEVOMEPROMAZINE
     Indication: POOR QUALITY SLEEP
     Route: 065
  12. OXAZEPAM. [Interacting]
     Active Substance: OXAZEPAM
     Indication: POOR QUALITY SLEEP
     Route: 065
  13. BENZTROPINE MESYLATE. [Concomitant]
     Active Substance: BENZTROPINE MESYLATE
     Indication: DYSTONIA
  14. QUETIAPINE. [Interacting]
     Active Substance: QUETIAPINE
     Indication: BIPOLAR I DISORDER
  15. TEMAZEPAM. [Interacting]
     Active Substance: TEMAZEPAM
     Indication: BIPOLAR I DISORDER
  16. ZOPICLONE [Interacting]
     Active Substance: ZOPICLONE
     Indication: POOR QUALITY SLEEP
     Route: 065
  17. CLONAZEPAM. [Interacting]
     Active Substance: CLONAZEPAM
     Indication: DYSTONIA
  18. NOZINAN [LEVOMEPROMAZINE] [Interacting]
     Active Substance: LEVOMEPROMAZINE
     Indication: BIPOLAR I DISORDER
  19. LORAZEPAM. [Concomitant]
     Active Substance: LORAZEPAM
     Indication: BIPOLAR I DISORDER
     Route: 065
  20. VORTIOXETINE. [Concomitant]
     Active Substance: VORTIOXETINE
     Indication: ANTIDEPRESSANT THERAPY
     Route: 048
  21. CLONAZEPAM. [Interacting]
     Active Substance: CLONAZEPAM
     Indication: BIPOLAR I DISORDER
  22. ABILIFY MAINTENA [Interacting]
     Active Substance: ARIPIPRAZOLE
     Indication: PSYCHOTIC DISORDER
     Route: 030
  23. ZOPICLONE [Interacting]
     Active Substance: ZOPICLONE
     Indication: BIPOLAR I DISORDER
  24. QUETIAPINE. [Interacting]
     Active Substance: QUETIAPINE
     Indication: POOR QUALITY SLEEP
     Route: 065
  25. TEMAZEPAM. [Interacting]
     Active Substance: TEMAZEPAM
     Indication: POOR QUALITY SLEEP
     Route: 065
  26. BENZTROPINE MESYLATE. [Concomitant]
     Active Substance: BENZTROPINE MESYLATE
     Indication: DYSTONIC TREMOR
     Route: 065

REACTIONS (9)
  - Dystonia [Unknown]
  - Drug ineffective [Unknown]
  - Drug interaction [Unknown]
  - Restlessness [Unknown]
  - Musculoskeletal stiffness [Unknown]
  - Product use in unapproved indication [Unknown]
  - Dystonic tremor [Unknown]
  - Tremor [Unknown]
  - Muscle contracture [Unknown]
